FAERS Safety Report 6411294-5 (Version None)
Quarter: 2009Q4

REPORT INFORMATION
  Report Type: 
  Country: None (occurrence: None)
  Receive Date: 20091023
  Receipt Date: 20091013
  Transmission Date: 20100525
  Serious: Yes (Hospitalization)
  Sender: FDA-Public Use
  Company Number: DE-WYE-H10625909

PATIENT
  Sex: Female

DRUGS (3)
  1. PANTOPRAZOLE SODIUM [Suspect]
     Indication: HELICOBACTER INFECTION
     Dosage: UNKNOWN
     Route: 048
     Dates: start: 20090731, end: 20090806
  2. CLARITHROMYCIN [Suspect]
     Dosage: UNKNOWN
     Route: 048
     Dates: start: 20090731, end: 20090806
  3. AMOXICILLIN TRIHYDRATE [Suspect]
     Dosage: UNKNOWN
     Route: 048
     Dates: start: 20090731, end: 20090806

REACTIONS (4)
  - DERMATITIS ALLERGIC [None]
  - DIARRHOEA [None]
  - PRURITUS [None]
  - VOMITING [None]
